FAERS Safety Report 7053303-9 (Version None)
Quarter: 2010Q4

REPORT INFORMATION
  Report Type: 
  Country: None (occurrence: None)
  Receive Date: 20101020
  Receipt Date: 20101008
  Transmission Date: 20110411
  Serious: Yes (Other)
  Sender: FDA-Public Use
  Company Number: PHHY2010NL67685

PATIENT
  Sex: Female

DRUGS (3)
  1. ZOMETA [Suspect]
     Dosage: 4 MG/5 ML
     Route: 042
     Dates: start: 20090605
  2. ZOMETA [Suspect]
     Dosage: 4 MG/5 ML
     Route: 042
     Dates: start: 20100910
  3. ZOMETA [Suspect]
     Dosage: 4 MG/5 ML
     Route: 042
     Dates: start: 20101008

REACTIONS (6)
  - ABSCESS JAW [None]
  - BODY TEMPERATURE INCREASED [None]
  - FEELING HOT [None]
  - INFLUENZA LIKE ILLNESS [None]
  - OSTEITIS [None]
  - SWELLING FACE [None]
